FAERS Safety Report 6745722-2 (Version None)
Quarter: 2010Q2

REPORT INFORMATION
  Report Type: 
  Country: None (occurrence: None)
  Receive Date: 20100528
  Receipt Date: 20100524
  Transmission Date: 20101027
  Serious: Yes (Hospitalization)
  Sender: FDA-Public Use
  Company Number: US-KINGPHARMUSA00001-K201000637

PATIENT
  Sex: Male

DRUGS (7)
  1. CORGARD [Suspect]
     Indication: HYPERTENSION
     Dosage: 80 MG, QD
     Route: 048
     Dates: end: 20100430
  2. KARDEGIC [Suspect]
     Indication: ISCHAEMIC HEART DISEASE PROPHYLAXIS
     Dosage: 1 DF, QD
     Route: 048
     Dates: end: 20100430
  3. MEMANTINE HCL [Suspect]
     Indication: DEMENTIA ALZHEIMER'S TYPE
     Dosage: 10 MG, QD
     Route: 048
     Dates: start: 20081209, end: 20100503
  4. ARICEPT [Suspect]
     Indication: DEMENTIA ALZHEIMER'S TYPE
     Dosage: 10 MG, QD
     Route: 048
     Dates: end: 20100503
  5. ALPRAZOLAM [Suspect]
     Indication: ABNORMAL BEHAVIOUR
     Dosage: 0.25 MG, UNK
     Route: 048
     Dates: start: 20100414, end: 20100429
  6. HALDOL [Suspect]
     Indication: ABNORMAL BEHAVIOUR
     Dosage: 20 GTT, QD
     Route: 048
     Dates: start: 20100414, end: 20100429
  7. EQUANIL [Concomitant]

REACTIONS (5)
  - AGGRESSION [None]
  - LEUKOPENIA [None]
  - LYMPHOPENIA [None]
  - NEUTROPENIA [None]
  - THROMBOCYTOPENIA [None]
